FAERS Safety Report 8215327-5 (Version None)
Quarter: 2012Q1

REPORT INFORMATION
  Report Type: 
  Country: None (occurrence: None)
  Receive Date: 20120316
  Receipt Date: 20120307
  Transmission Date: 20120608
  Serious: Yes (Hospitalization)
  Sender: FDA-Public Use
  Company Number: SE-SANOFI-AVENTIS-2011SA052237

PATIENT
  Age: 60 Year
  Sex: Male

DRUGS (26)
  1. CLOPIDOGREL BISULFATE [Suspect]
     Route: 065
     Dates: end: 20110903
  2. INSULATARD NPH HUMAN [Concomitant]
     Dates: start: 20110718, end: 20110903
  3. OXYCONTIN [Concomitant]
     Dates: start: 20110711, end: 20110903
  4. HMG COA REDUCTASE INHIBITORS [Concomitant]
  5. HEPARIN [Concomitant]
     Dates: start: 20110824, end: 20110826
  6. PLATELET AGGREGATION INHIBITORS [Concomitant]
  7. METFORMIN HYDROCHLORIDE [Concomitant]
     Dates: end: 20110711
  8. MORPHINE [Concomitant]
     Dates: start: 20110830, end: 20110903
  9. DALTEPARIN SODIUM [Concomitant]
     Dosage: DOSE:1500 UNIT(S)
     Dates: start: 20110711, end: 20110903
  10. OMEPRAZOLE [Concomitant]
     Dates: start: 20110716, end: 20110903
  11. FUROSEMIDE [Concomitant]
     Dates: start: 20110822, end: 20110903
  12. IMPORTAL [Concomitant]
     Dates: start: 20110726, end: 20110903
  13. LACTULOSE [Concomitant]
     Dates: start: 20110720, end: 20110725
  14. PRIMPERAN TAB [Concomitant]
     Dates: start: 20110812, end: 20110818
  15. ANGIOTENSIN II ANTAGONISTS [Concomitant]
  16. FRAGMIN [Concomitant]
     Dates: start: 20110826, end: 20110903
  17. FUROSEMIDE [Concomitant]
     Dates: start: 20110711
  18. SPIRONOLACTONE [Concomitant]
     Dates: start: 20110713, end: 20110903
  19. ASPIRIN [Concomitant]
     Dates: end: 20110722
  20. SODIUM PICOSULFATE [Concomitant]
     Dates: start: 20110712, end: 20110725
  21. NOVORAPID [Concomitant]
     Dates: start: 20110711, end: 20110719
  22. PRIMPERAN TAB [Concomitant]
     Dates: start: 20110823, end: 20110903
  23. ETHYLMORPHINE [Concomitant]
     Dates: start: 20110811, end: 20110817
  24. PROPRANOLOL [Concomitant]
     Dates: start: 20110811, end: 20110827
  25. BETA BLOCKING AGENTS [Concomitant]
  26. NOSKAPIN [Concomitant]
     Dates: start: 20110813, end: 20110818

REACTIONS (9)
  - PULMONARY EMBOLISM [None]
  - SUDDEN DEATH [None]
  - ARRHYTHMIA [None]
  - ASCITES [None]
  - DEHYDRATION [None]
  - PORTAL VEIN THROMBOSIS [None]
  - HAEMATURIA [None]
  - LIVER DISORDER [None]
  - CONSTIPATION [None]
